FAERS Safety Report 7374311-4 (Version None)
Quarter: 2011Q1

REPORT INFORMATION
  Report Type: 
  Country: None (occurrence: None)
  Receive Date: 20110225
  Receipt Date: 20110110
  Transmission Date: 20110831
  Serious: No
  Sender: FDA-Public Use
  Company Number: 321447

PATIENT
  Age: 68 Year
  Sex: Female

DRUGS (1)
  1. VICTOZA [Suspect]
     Indication: TYPE 2 DIABETES MELLITUS
     Dosage: SUBCUTANEOUS
     Route: 058
     Dates: start: 20110108

REACTIONS (6)
  - DIARRHOEA [None]
  - NAUSEA [None]
  - VOMITING [None]
  - HEADACHE [None]
  - ERUCTATION [None]
  - FLATULENCE [None]
